FAERS Safety Report 8236458-X (Version None)
Quarter: 2012Q1

REPORT INFORMATION
  Report Type: 
  Country: None (occurrence: None)
  Receive Date: 20120327
  Receipt Date: 20120322
  Transmission Date: 20120608
  Serious: Yes (Hospitalization, Other)
  Sender: FDA-Public Use
  Company Number: BR-SANOFI-AVENTIS-2012SA020333

PATIENT
  Age: 72 Year
  Sex: Male

DRUGS (2)
  1. CLIKSTAR [Suspect]
     Indication: DEVICE THERAPY
  2. LANTUS [Suspect]
     Route: 058

REACTIONS (2)
  - FEMUR FRACTURE [None]
  - FALL [None]
